FAERS Safety Report 10261052 (Version 6)
Quarter: 2014Q4

REPORT INFORMATION
  Report Type: Spontaneous
  Country: US (occurrence: None)
  Receive Date: 20140623
  Receipt Date: 20141030
  Transmission Date: 20150528
  Serious: Yes (Hospitalization)
  Sender: FDA-Public Use
  Company Number: UNT-2014-002405

PATIENT
  Age: 79 Year
  Sex: Female
  Weight: 74.4 kg

DRUGS (4)
  1. REVATIO (SILDENAFIL CITRATE) [Concomitant]
  2. OSPUMIT (MACITENTAN) [Concomitant]
  3. TYVASO [Suspect]
     Active Substance: TREPROSTINIL
     Indication: PULMONARY ARTERIAL HYPERTENSION
     Route: 055
     Dates: start: 20140321
  4. COUMADIN [Concomitant]
     Active Substance: WARFARIN SODIUM

REACTIONS (11)
  - Oedema peripheral [None]
  - Deafness unilateral [None]
  - Weight decreased [None]
  - Femur fracture [None]
  - Fall [None]
  - Hip fracture [None]
  - Deafness [None]
  - Syncope [None]
  - Haemoptysis [None]
  - Laboratory test abnormal [None]
  - Blood potassium decreased [None]

NARRATIVE: CASE EVENT DATE: 20140609
